FAERS Safety Report 6003335-4 (Version None)
Quarter: 2008Q4

REPORT INFORMATION
  Report Type: 
  Country: None (occurrence: None)
  Receive Date: 20081216
  Receipt Date: 20081113
  Transmission Date: 20090506
  Serious: No
  Sender: FDA-Public Use
  Company Number: US-BAYER-200838645NA

PATIENT
  Age: 51 Year
  Sex: Male
  Weight: 122 kg

DRUGS (2)
  1. ULTRAVIST 300 [Suspect]
     Indication: COMPUTERISED TOMOGRAM HEAD
     Dosage: TOTAL DAILY DOSE: 125  ML  UNIT DOSE: 125 ML
     Route: 042
     Dates: start: 20081113, end: 20081113
  2. FLORASET [Concomitant]

REACTIONS (3)
  - COUGH [None]
  - PRURITUS [None]
  - SNEEZING [None]
